FAERS Safety Report 15469418 (Version 2)
Quarter: 2018Q4

REPORT INFORMATION
  Report Type: Report from Study
  Country: ES (occurrence: ES)
  Receive Date: 20181005
  Receipt Date: 20181029
  Transmission Date: 20190205
  Serious: Yes (Hospitalization, Other)
  Sender: FDA-Public Use
  Company Number: ES-ELI_LILLY_AND_COMPANY-ES201809006196

PATIENT
  Age: 62 Year
  Sex: Female

DRUGS (1)
  1. TERIPARATIDE [Suspect]
     Active Substance: TERIPARATIDE
     Indication: OSTEOPOROSIS
     Dosage: 20 UG, DAILY
     Route: 058
     Dates: start: 20180622

REACTIONS (7)
  - Lower limb fracture [Unknown]
  - Gait inability [Unknown]
  - Osteomyelitis [Unknown]
  - Device dislocation [Unknown]
  - Anaemia [Unknown]
  - Pain [Unknown]
  - Bone disorder [Unknown]

NARRATIVE: CASE EVENT DATE: 201808
